FAERS Safety Report 8374008-8 (Version None)
Quarter: 2012Q2

REPORT INFORMATION
  Report Type: 
  Country: None (occurrence: None)
  Receive Date: 20120521
  Receipt Date: 20120514
  Transmission Date: 20120825
  Serious: No
  Sender: FDA-Public Use
  Company Number: US-B.I. PHARMACEUTICALS,INC./RIDGEFIELD-2012-BP-10771BP

PATIENT
  Sex: Female

DRUGS (3)
  1. SINGULAIR [Concomitant]
     Indication: HYPERSENSITIVITY
  2. SPIRIVA [Suspect]
     Indication: ASTHMA
     Dosage: 18 MCG
     Route: 055
     Dates: start: 20120427, end: 20120511
  3. CLARITIN [Concomitant]
     Indication: HYPERSENSITIVITY

REACTIONS (3)
  - WHEEZING [None]
  - COUGH [None]
  - DYSPNOEA [None]
